FAERS Safety Report 20222242 (Version 1)
Quarter: 2021Q4

REPORT INFORMATION
  Report Type: Report from Study
  Country: IN (occurrence: IN)
  Receive Date: 20211223
  Receipt Date: 20211223
  Transmission Date: 20220303
  Serious: Yes (Other)
  Sender: FDA-Public Use
  Company Number: IN-MYLANLABS-2021M1095406

PATIENT
  Age: 63 Year
  Sex: Male

DRUGS (6)
  1. ACETAMINOPHEN [Suspect]
     Active Substance: ACETAMINOPHEN
     Indication: Pancreatitis chronic
     Dosage: UNK
     Route: 042
  2. ACETAMINOPHEN [Suspect]
     Active Substance: ACETAMINOPHEN
     Indication: Abdominal pain
  3. FENTANYL [Suspect]
     Active Substance: FENTANYL
     Indication: Pancreatitis chronic
     Dosage: UNK
     Route: 042
  4. FENTANYL [Suspect]
     Active Substance: FENTANYL
     Indication: Abdominal pain
  5. TRAMADOL [Suspect]
     Active Substance: TRAMADOL
     Indication: Pancreatitis chronic
     Dosage: UNK
     Route: 042
  6. TRAMADOL [Suspect]
     Active Substance: TRAMADOL
     Indication: Abdominal pain

REACTIONS (1)
  - Drug ineffective [Unknown]
